FAERS Safety Report 8817512 (Version 4)
Quarter: 2013Q2

REPORT INFORMATION
  Report Type: Report from Study
  Country: JP (occurrence: JP)
  Receive Date: 20121004
  Receipt Date: 20130403
  Transmission Date: 20140414
  Serious: Yes (Life-Threatening, Other)
  Sender: FDA-Public Use
  Company Number: JP-PFIZER INC-2012241656

PATIENT
  Age: 64 Year
  Sex: Male
  Weight: 58.5 kg

DRUGS (14)
  1. FOSPHENYTOIN SODIUM [Suspect]
     Indication: CONVULSION PROPHYLAXIS
     Dosage: 15 MG/KG (10 MG/MIN)
     Dates: start: 20120903
  2. FOSPHENYTOIN SODIUM [Suspect]
     Dosage: 5 MG/KG (6.25 MG/MIN)
     Dates: start: 20120904
  3. FOSPHENYTOIN SODIUM [Suspect]
     Dosage: 5 MG/KG (6.25 MG/MIN)
     Dates: start: 20120905
  4. FOSPHENYTOIN SODIUM [Suspect]
     Dosage: 5 MG/KG (6.25 MG/MIN)
     Dates: start: 20120906
  5. PROPOFOL [Concomitant]
     Indication: ANAESTHESIA
     Dosage: 550 ML, UNK
     Dates: start: 20120903, end: 20120907
  6. GASTER [Concomitant]
     Indication: PROPHYLAXIS
     Dosage: 160 MG, UNK
     Dates: start: 20120903, end: 20120910
  7. ADONA [Concomitant]
     Indication: PROPHYLAXIS
     Dosage: 40 ML, UNK
     Dates: start: 20120903, end: 20120905
  8. CEFAMEZIN [Concomitant]
     Indication: PROPHYLAXIS
     Dosage: 11 G, UNK
     Dates: start: 20120903, end: 20120912
  9. TRANSAMIN [Concomitant]
     Indication: PROPHYLAXIS
     Dosage: 2000 MG, UNK
     Dates: start: 20120903, end: 20120905
  10. GLYCEOL [Concomitant]
     Indication: POSTOPERATIVE CARE
     Dosage: 1200 MG, UNK
     Dates: start: 20120903, end: 20120911
  11. PERDIPINE [Concomitant]
     Indication: POSTOPERATIVE CARE
     Dosage: 100 ML, UNK
     Dates: start: 20120905, end: 20120908
  12. DECADRON [Concomitant]
     Indication: POSTOPERATIVE CARE
     Dosage: 1 ML, UNK
     Dates: start: 20120907, end: 20120907
  13. EXCEGRAN [Concomitant]
     Dosage: 100 MG, 2X/DAY
     Route: 048
  14. DEPAKENE [Concomitant]
     Dosage: 200 MG X 6T
     Route: 048

REACTIONS (3)
  - Post procedural haemorrhage [Recovered/Resolved]
  - Hypoaesthesia [Recovered/Resolved]
  - Altered state of consciousness [Recovered/Resolved]
